FAERS Safety Report 5026553-0 (Version None)
Quarter: 2006Q2

REPORT INFORMATION
  Report Type: 
  Country: None (occurrence: None)
  Receive Date: 20060615
  Receipt Date: 20051024
  Transmission Date: 20061013
  Serious: Yes (Other)
  Sender: FDA-Public Use
  Company Number: US-AVENTIS-200519241US

PATIENT
  Age: 82 Year
  Sex: Female

DRUGS (9)
  1. ALLEGRA [Suspect]
     Indication: RASH
     Route: 048
     Dates: start: 20050422, end: 20050615
  2. ALLEGRA [Suspect]
     Indication: PRURITUS
     Route: 048
     Dates: start: 20050422, end: 20050615
  3. ZYRTEC [Suspect]
     Indication: RASH
     Dates: start: 20050422
  4. ZYRTEC [Suspect]
     Indication: PRURITUS
     Dates: start: 20050422
  5. DEXCHLORPHENIRAMINE [Suspect]
     Route: 048
  6. LEVOXYL [Concomitant]
     Dosage: DOSE: UNK
  7. ENALAPRIL [Concomitant]
     Dosage: DOSE: UNK
  8. ZETIA                                   /USA/ [Concomitant]
     Dosage: DOSE: UNK
  9. CARDIZEM [Concomitant]
     Dosage: DOSE: UNK

REACTIONS (7)
  - DIZZINESS [None]
  - FALL [None]
  - FOOT FRACTURE [None]
  - HALLUCINATION [None]
  - IMPAIRED DRIVING ABILITY [None]
  - SKELETAL INJURY [None]
  - TINNITUS [None]
